FAERS Safety Report 4704462-1 (Version None)
Quarter: 2005Q2

REPORT INFORMATION
  Report Type: 
  Country: None (occurrence: None)
  Receive Date: 20050630
  Receipt Date: 20050630
  Transmission Date: 20051028
  Serious: Yes (Hospitalization)
  Sender: FDA-Public Use
  Company Number: None

PATIENT
  Age: 84 Year
  Sex: Male
  Weight: 74 kg

DRUGS (14)
  1. DIGOXIN [Suspect]
     Indication: CARDIAC FAILURE CONGESTIVE
     Dosage: 0.25  QD ORAL
     Route: 048
     Dates: start: 20040217, end: 20040316
  2. CARVEDILOL [Suspect]
     Indication: CARDIAC FAILURE CONGESTIVE
     Dosage: 6.25 MG QD ORAL
     Route: 048
     Dates: start: 20040220, end: 20040316
  3. TERAZOSIN HCL [Concomitant]
  4. SPIRONOLACTONE [Concomitant]
  5. SIMVASTATIN [Concomitant]
  6. ZANTAC [Concomitant]
  7. INSULIN [Concomitant]
  8. FOSINOPRIL [Concomitant]
  9. COLCHINE [Concomitant]
  10. ASPIRIN [Concomitant]
  11. ALLOPURINOL [Concomitant]
  12. MOM [Concomitant]
  13. DOCUSATE [Concomitant]
  14. TYLENOL [Concomitant]

REACTIONS (9)
  - ANOREXIA [None]
  - ASTHENIA [None]
  - BRADYCARDIA [None]
  - DRUG LEVEL BELOW THERAPEUTIC [None]
  - MALAISE [None]
  - NAUSEA [None]
  - VENTRICULAR EXTRASYSTOLES [None]
  - VISUAL DISTURBANCE [None]
  - VOMITING [None]
